FAERS Safety Report 17200424 (Version 3)
Quarter: 2020Q1

REPORT INFORMATION
  Report Type: Spontaneous
  Country: US (occurrence: US)
  Receive Date: 20191226
  Receipt Date: 20200102
  Transmission Date: 20200409
  Serious: Yes (Other)
  Sender: FDA-Public Use
  Company Number: US-ELI_LILLY_AND_COMPANY-US201912011965

PATIENT
  Sex: Female

DRUGS (2)
  1. PROLIA [Suspect]
     Active Substance: DENOSUMAB
     Indication: PRODUCT USED FOR UNKNOWN INDICATION
     Dosage: UNK UNK, UNKNOWN
     Route: 065
  2. FORTEO [Suspect]
     Active Substance: TERIPARATIDE
     Indication: PRODUCT USED FOR UNKNOWN INDICATION
     Dosage: UNK UNK, UNKNOWN (MORNING)
     Route: 065

REACTIONS (9)
  - Memory impairment [Unknown]
  - Spinal fracture [Unknown]
  - Wrist fracture [Not Recovered/Not Resolved]
  - Gait disturbance [Unknown]
  - Spinal compression fracture [Unknown]
  - Nausea [Unknown]
  - Femur fracture [Unknown]
  - Multiple fractures [Unknown]
  - Hand fracture [Not Recovered/Not Resolved]
